FAERS Safety Report 6761900-0 (Version None)
Quarter: 2010Q2

REPORT INFORMATION
  Report Type: 
  Country: None (occurrence: None)
  Receive Date: 20100609
  Receipt Date: 20100528
  Transmission Date: 20101027
  Serious: Yes (Hospitalization)
  Sender: FDA-Public Use
  Company Number: PHHY2010US35297

PATIENT
  Sex: Female
  Weight: 60.57 kg

DRUGS (1)
  1. EXJADE [Suspect]
     Indication: APLASIA PURE RED CELL
     Dosage: 1750 MG, DAILY
     Route: 048
     Dates: start: 20080605

REACTIONS (1)
  - BONE MARROW TRANSPLANT [None]
